FAERS Safety Report 19818196 (Version 1)
Quarter: 2021Q3

REPORT INFORMATION
  Report Type: Report from Study
  Country: IT (occurrence: IT)
  Receive Date: 20210911
  Receipt Date: 20210911
  Transmission Date: 20211014
  Serious: Yes (Hospitalization)
  Sender: FDA-Public Use
  Company Number: IT-TEVA-2021-IT-1950723

PATIENT
  Age: 78 Year
  Sex: Male

DRUGS (4)
  1. VALSARTAN. [Suspect]
     Active Substance: VALSARTAN
     Indication: HYPERTENSION
     Dates: end: 20210702
  2. PREGABALIN. [Suspect]
     Active Substance: PREGABALIN
     Indication: MYELOPROLIFERATIVE NEOPLASM
     Dates: end: 20210702
  3. FEBUXOSTAT. [Suspect]
     Active Substance: FEBUXOSTAT
     Indication: MYELOPROLIFERATIVE NEOPLASM
     Dates: end: 20210702
  4. ONCO CARBIDE [Suspect]
     Active Substance: HYDROXYUREA
     Indication: MYELOPROLIFERATIVE NEOPLASM
     Route: 048

REACTIONS (4)
  - Acute kidney injury [Recovering/Resolving]
  - Blood potassium increased [Recovering/Resolving]
  - Hypercreatininaemia [Recovering/Resolving]
  - Metabolic acidosis [Recovering/Resolving]

NARRATIVE: CASE EVENT DATE: 20210701
